FAERS Safety Report 18336979 (Version 1)
Quarter: 2020Q4

REPORT INFORMATION
  Report Type: Spontaneous
  Country: PL (occurrence: PL)
  Receive Date: 20201001
  Receipt Date: 20201001
  Transmission Date: 20210113
  Serious: Yes (Other)
  Sender: FDA-Public Use
  Company Number: PL-BAXTER-2020BAX019779

PATIENT
  Age: 53 Year
  Sex: Female
  Weight: 71 kg

DRUGS (3)
  1. ENDOXAN [Suspect]
     Active Substance: CYCLOPHOSPHAMIDE
     Indication: BREAST CANCER
     Dosage: DOSE 1062 UNIT UNKNOWN.
     Route: 042
     Dates: start: 20200128, end: 20200128
  2. DOXORUBICINUM ACCORD [Suspect]
     Active Substance: DOXORUBICIN
     Dosage: VIAL 50ML, EXP. 31.12.2020. DOSE 106 UNIT UNKNOWN.
     Route: 042
     Dates: start: 20200128, end: 20200128
  3. DOXORUBICINUM ACCORD [Suspect]
     Active Substance: DOXORUBICIN
     Indication: BREAST CANCER
     Dosage: VIAL 25ML, EXP. 31.08.2020. DOSE 106 UNIT UNKNOWN.
     Route: 042
     Dates: start: 20200128, end: 20200128

REACTIONS (1)
  - Proctitis [Recovering/Resolving]

NARRATIVE: CASE EVENT DATE: 20200205
